FAERS Safety Report 19951802 (Version 1)
Quarter: 2021Q4

REPORT INFORMATION
  Report Type: Spontaneous
  Country: DE (occurrence: DE)
  Receive Date: 20211013
  Receipt Date: 20211013
  Transmission Date: 20220304
  Serious: Yes (Life-Threatening, Hospitalization, Other)
  Sender: FDA-Public Use
  Company Number: DE-ADRED-06735-01

PATIENT
  Age: 86 Year
  Sex: Female
  Weight: 64 kg

DRUGS (13)
  1. HYDROCHLOROTHIAZIDE\METOPROLOL [Interacting]
     Active Substance: HYDROCHLOROTHIAZIDE\METOPROLOL
     Indication: Product used for unknown indication
     Dosage: UNK (12.5|95 MG, 1-0-0-0, RETARD-TABLETTEN)
     Route: 048
  2. TORSEMIDE [Interacting]
     Active Substance: TORSEMIDE
     Indication: Product used for unknown indication
     Dosage: UNK (10 MG, 0-0-1-0, TABLETTEN)
     Route: 048
  3. DULOXETINE HYDROCHLORIDE [Interacting]
     Active Substance: DULOXETINE HYDROCHLORIDE
     Indication: Product used for unknown indication
     Dosage: UNK 30 MG, 1-0-0-0, KAPSELN)
     Route: 048
  4. METOCLOPRAMIDE [Concomitant]
     Active Substance: METOCLOPRAMIDE
     Dosage: UNK (10 MG, BEDARF, TABLETTEN)
     Route: 048
  5. BRIMONIDINE [Concomitant]
     Active Substance: BRIMONIDINE TARTRATE
     Dosage: UNK (2 MG/ML, 1-0-0-0, TROPFEN)
     Route: 047
  6. ATORVASTATIN [Concomitant]
     Active Substance: ATORVASTATIN
     Dosage: UNK (80 MG, 0-0-1-0, TABLETTEN)
     Route: 048
  7. METFORMIN [Concomitant]
     Active Substance: METFORMIN HYDROCHLORIDE
     Dosage: UNK (1000 MG, 1-0-1-0, TABLETTEN)
     Route: 048
  8. LATANOPROST [Concomitant]
     Active Substance: LATANOPROST
     Dosage: UNK (50 ?/ML, 0-0-0-1, TROPFEN0
     Route: 047
  9. AMLODIPINE OROTATE W/OLMESARTAN MEDOXOMIL [Concomitant]
     Dosage: UNK (5|20 MG, 1-0-0-0, TABLETTEN)
     Route: 048
  10. ASPIRIN [Concomitant]
     Active Substance: ASPIRIN
     Dosage: UNK (100 MG, 0-1-0-0, TABLETTEN)
     Route: 048
  11. METOPROLOL [Concomitant]
     Active Substance: METOPROLOL
     Dosage: UNK (95 MG, 0-0-1-0, RETARD-TABLETTEN)
     Route: 048
  12. METAMIZOLE [Concomitant]
     Active Substance: METAMIZOLE
     Dosage: UNK (500 MG/ML, BEDARF, TROPFEN)
     Route: 048
  13. NALOXONE HYDROCHLORIDE W/TILIDINE PHOSPHATE [Concomitant]
     Dosage: UNK (4|50 MG, 2-0-2-0, RETARD-TABLETTEN)
     Route: 048

REACTIONS (5)
  - Product administration error [Unknown]
  - Product monitoring error [Unknown]
  - Labelled drug-drug interaction medication error [Unknown]
  - Musculoskeletal pain [Unknown]
  - Hyponatraemia [Unknown]
